FAERS Safety Report 8163962-5 (Version None)
Quarter: 2012Q1

REPORT INFORMATION
  Report Type: 
  Country: None (occurrence: None)
  Receive Date: 20120224
  Receipt Date: 20120217
  Transmission Date: 20120608
  Serious: Yes (Death, Hospitalization)
  Sender: FDA-Public Use
  Company Number: UA-CELGENEUS-269-50794-12021968

PATIENT
  Age: 72 Year
  Sex: Female

DRUGS (3)
  1. VIDAZA [Suspect]
     Dosage: 75 MILLIGRAM/SQ. METER
     Route: 058
     Dates: start: 20111127, end: 20111231
  2. ANTI-EMETIC [Concomitant]
     Indication: VOMITING
     Route: 065
  3. SIMETHICONE [Concomitant]
     Indication: FLATULENCE
     Route: 065

REACTIONS (1)
  - POISONING [None]
